FAERS Safety Report 8236582-1 (Version None)
Quarter: 2012Q1

REPORT INFORMATION
  Report Type: 
  Country: None (occurrence: None)
  Receive Date: 20120327
  Receipt Date: 20120322
  Transmission Date: 20120608
  Serious: Yes (Hospitalization)
  Sender: FDA-Public Use
  Company Number: US-B.I. PHARMACEUTICALS,INC./RIDGEFIELD-2011-BP-26538BP

PATIENT
  Sex: Male

DRUGS (15)
  1. SAXAGLIPTIN [Suspect]
     Indication: TYPE 2 DIABETES MELLITUS
     Dates: start: 20110222, end: 20110921
  2. DIURETICS [Concomitant]
  3. NITRATES [Concomitant]
  4. CALCIUM ANTAGONIST [Concomitant]
  5. STATIN [Concomitant]
  6. CLONIDINE HCL [Suspect]
     Dates: start: 20110809, end: 20111105
  7. LANTUS [Suspect]
     Indication: TYPE 2 DIABETES MELLITUS
  8. PLACEBO [Suspect]
     Indication: TYPE 2 DIABETES MELLITUS
  9. ALDOSTERONE INHIBITOR [Concomitant]
  10. APIDRA [Suspect]
     Indication: TYPE 2 DIABETES MELLITUS
     Dosage: 45 U
     Dates: start: 20110413
  11. BETA BLOCKER [Concomitant]
  12. CATAPRES-TTS-1 [Suspect]
     Dates: start: 20110809, end: 20111105
  13. OTHER HYPERTENSION AGENT [Concomitant]
  14. ADP ANTAGONIST [Concomitant]
  15. ANGIOTENSION CONVERTING ENZYME INHIBITOR [Concomitant]

REACTIONS (1)
  - SYNCOPE [None]
